FAERS Safety Report 6673162-3 (Version None)
Quarter: 2010Q2

REPORT INFORMATION
  Report Type: 
  Country: None (occurrence: None)
  Receive Date: 20100408
  Receipt Date: 20100330
  Transmission Date: 20101027
  Serious: Yes (Other)
  Sender: FDA-Public Use
  Company Number: US-JNJFOC-20100400678

PATIENT
  Sex: Male

DRUGS (1)
  1. DURAGESIC-100 [Suspect]
     Indication: PAIN
     Route: 062

REACTIONS (7)
  - CONSTIPATION [None]
  - HYPERVENTILATION [None]
  - INAPPROPRIATE SCHEDULE OF DRUG ADMINISTRATION [None]
  - MOBILITY DECREASED [None]
  - PAIN [None]
  - SKIN DISCOLOURATION [None]
  - TREATMENT NONCOMPLIANCE [None]
